FAERS Safety Report 19885960 (Version 1)
Quarter: 2021Q3

REPORT INFORMATION
  Report Type: Spontaneous
  Country: ES (occurrence: ES)
  Receive Date: 20210927
  Receipt Date: 20210927
  Transmission Date: 20211014
  Serious: Yes (Other)
  Sender: FDA-Public Use
  Company Number: ES-MYLANLABS-2021M1064488

PATIENT
  Age: 16 Year
  Sex: Male

DRUGS (5)
  1. VALPROIC ACID. [Concomitant]
     Active Substance: VALPROIC ACID
     Indication: EPILEPSY
     Dosage: 1200 MILLIGRAM, QD
  2. METAMIZOLE [Concomitant]
     Active Substance: METAMIZOLE
     Indication: ANTIPYRESIS
     Dosage: UNK
  3. LEVETIRACETAM. [Suspect]
     Active Substance: LEVETIRACETAM
     Indication: EPILEPSY
     Dosage: 3500 MILLIGRAM, QD
  4. PARACETAMOL [Concomitant]
     Active Substance: ACETAMINOPHEN
     Indication: ANTIPYRESIS
     Dosage: UNK
  5. AZITHROMYCIN ANHYDROUS. [Concomitant]
     Active Substance: AZITHROMYCIN ANHYDROUS
     Indication: COVID-19
     Dosage: 500 MILLIGRAM

REACTIONS (6)
  - Generalised tonic-clonic seizure [Unknown]
  - COVID-19 [Unknown]
  - Product use issue [Unknown]
  - Overdose [Unknown]
  - Rash [Unknown]
  - Epilepsy [Unknown]
